FAERS Safety Report 12682567 (Version 1)
Quarter: 2016Q3

REPORT INFORMATION
  Report Type: Report from Study
  Country: US (occurrence: US)
  Receive Date: 20160825
  Receipt Date: 20160825
  Transmission Date: 20161109
  Serious: Yes (Other)
  Sender: FDA-Public Use
  Company Number: PHEH2016US021298

PATIENT
  Age: 44 Year
  Sex: Male

DRUGS (2)
  1. SANDOSTATIN LAR DEPOT [Suspect]
     Active Substance: OCTREOTIDE ACETATE
     Indication: PANCREATIC NEUROENDOCRINE TUMOUR
     Dosage: UNK OT, QMO
     Route: 030
     Dates: start: 20090101, end: 2010
  2. SANDOSTATIN LAR DEPOT [Suspect]
     Active Substance: OCTREOTIDE ACETATE
     Dosage: UNK
     Route: 030

REACTIONS (6)
  - Asthenia [Unknown]
  - Influenza like illness [Not Recovered/Not Resolved]
  - Fatigue [Unknown]
  - Malignant neoplasm progression [Unknown]
  - Neoplasm progression [Unknown]
  - Pain [Unknown]

NARRATIVE: CASE EVENT DATE: 2009
